FAERS Safety Report 5055075-6 (Version None)
Quarter: 2006Q3

REPORT INFORMATION
  Report Type: 
  Country: None (occurrence: None)
  Receive Date: 20060717
  Receipt Date: 20060705
  Transmission Date: 20061208
  Serious: Yes (Hospitalization)
  Sender: FDA-Public Use
  Company Number: 226517

PATIENT
  Age: 72 Year
  Sex: Male

DRUGS (3)
  1. RITUXAN [Suspect]
     Indication: WALDENSTROM'S MACROGLOBULINAEMIA
  2. PREDNISONE TAB [Concomitant]
  3. FLUDARABINE [Concomitant]

REACTIONS (1)
  - DEMYELINATING POLYNEUROPATHY [None]
